FAERS Safety Report 9396454 (Version 2)
Quarter: 2013Q3

REPORT INFORMATION
  Report Type: Spontaneous
  Country: US (occurrence: US)
  Receive Date: 20130711
  Receipt Date: 20130723
  Transmission Date: 20140515
  Serious: Yes (Hospitalization)
  Sender: FDA-Public Use
  Company Number: US-BIOGENIDEC-2013BI061487

PATIENT
  Age: 51 Year
  Sex: Female

DRUGS (8)
  1. TYSABRI [Suspect]
     Indication: MULTIPLE SCLEROSIS
     Route: 042
     Dates: start: 20100204
  2. ZOLOFT [Concomitant]
  3. ZOCOR [Concomitant]
  4. MULTIVITAMIN [Concomitant]
  5. REGLAN [Concomitant]
  6. DEPAKOTE [Concomitant]
  7. CLONAZEPAM [Concomitant]
     Route: 048
  8. MUCINEX [Concomitant]
     Route: 048

REACTIONS (9)
  - Pneumonia [Recovered/Resolved]
  - Chronic obstructive pulmonary disease [Recovered/Resolved]
  - Acute respiratory failure [Recovered/Resolved]
  - Leukocytosis [Recovered/Resolved]
  - Dehydration [Recovered/Resolved]
  - Bronchitis [Recovered/Resolved]
  - Fall [Not Recovered/Not Resolved]
  - Tremor [Not Recovered/Not Resolved]
  - Drug effect decreased [Not Recovered/Not Resolved]
